FAERS Safety Report 4302145-3 (Version None)
Quarter: 2004Q1

REPORT INFORMATION
  Report Type: 
  Country: None (occurrence: None)
  Receive Date: 20040220
  Receipt Date: 20040210
  Transmission Date: 20041129
  Serious: Yes (Other)
  Sender: FDA-Public Use
  Company Number: 0400015EN0020P

PATIENT
  Age: 8 Year
  Sex: Female

DRUGS (5)
  1. ONCASPAR [Suspect]
     Indication: ACUTE LYMPHOCYTIC LEUKAEMIA
     Dosage: 90 IU, IV
     Route: 042
     Dates: start: 20020703
  2. ONCOVIN [Concomitant]
  3. ONDANSETRON HCL [Concomitant]
  4. SULFAMETHOXAZOLE + TRIMETHOPRIM [Concomitant]
  5. FLUCONAZOLE [Concomitant]

REACTIONS (7)
  - ABDOMINAL PAIN [None]
  - CYANOSIS [None]
  - HYPERSENSITIVITY [None]
  - HYPOTENSION [None]
  - OXYGEN SATURATION DECREASED [None]
  - PULSE ABNORMAL [None]
  - VOMITING [None]
